FAERS Safety Report 21783867 (Version 9)
Quarter: 2025Q1

REPORT INFORMATION
  Report Type: Spontaneous
  Country: US (occurrence: US)
  Receive Date: 20221227
  Receipt Date: 20250109
  Transmission Date: 20250408
  Serious: No
  Sender: PFIZER
  Company Number: US-PFIZER INC-PV202200130385

PATIENT
  Age: 83 Year
  Sex: Female
  Weight: 67.12 kg

DRUGS (2)
  1. BRAFTOVI [Suspect]
     Active Substance: ENCORAFENIB
     Dosage: TAKE 300 MG BY MOUTH ONCE DAILY
     Route: 048
     Dates: start: 20230101
  2. BRAFTOVI [Suspect]
     Active Substance: ENCORAFENIB
     Dosage: 75 MG, 4X/DAY
     Route: 048

REACTIONS (4)
  - Neoplasm progression [Unknown]
  - Cancer pain [Unknown]
  - Ear disorder [Unknown]
  - Off label use [Unknown]
